FAERS Safety Report 26149277 (Version 1)
Quarter: 2025Q4

REPORT INFORMATION
  Report Type: Report from Study
  Country: BR (occurrence: BR)
  Receive Date: 20251212
  Receipt Date: 20251212
  Transmission Date: 20260118
  Serious: Yes (Hospitalization)
  Sender: BIOGEN
  Company Number: BR-BIOGEN-2094748

PATIENT
  Age: 31 Year
  Sex: Female
  Weight: 50 kg

DRUGS (2)
  1. TYSABRI [Suspect]
     Active Substance: NATALIZUMAB
     Indication: Multiple sclerosis
     Dates: start: 202508
  2. TYSABRI [Suspect]
     Active Substance: NATALIZUMAB
     Dosage: FREQUENCY OF USE IN THE BEGINNING WAS NOT ASKED.

REACTIONS (2)
  - Caesarean section [Recovered/Resolved]
  - Maternal exposure during pregnancy [Recovered/Resolved]

NARRATIVE: CASE EVENT DATE: 20241001
